FAERS Safety Report 5275494-2 (Version None)
Quarter: 2007Q1

REPORT INFORMATION
  Report Type: 
  Country: None (occurrence: None)
  Receive Date: 20070326
  Receipt Date: 20070315
  Transmission Date: 20070707
  Serious: Yes (Life-Threatening, Hospitalization)
  Sender: FDA-Public Use
  Company Number: US-AMGEN-US209569

PATIENT
  Sex: Female

DRUGS (7)
  1. NEULASTA [Suspect]
     Indication: CHEMOTHERAPY
     Route: 058
     Dates: start: 20070124, end: 20070124
  2. ADRIAMYCIN PFS [Suspect]
     Indication: BREAST CANCER
     Route: 065
     Dates: start: 20070123, end: 20070123
  3. CYTOXAN [Concomitant]
     Indication: BREAST CANCER
     Route: 065
     Dates: start: 20070123, end: 20070123
  4. EMEND [Concomitant]
     Route: 065
     Dates: start: 20070123, end: 20070125
  5. ALOXI [Concomitant]
     Route: 065
     Dates: start: 20070123, end: 20070123
  6. PREDNISONE [Concomitant]
     Route: 065
     Dates: start: 20070123
  7. ATIVAN [Concomitant]
     Route: 065
     Dates: start: 20070123, end: 20070123

REACTIONS (5)
  - GUILLAIN-BARRE SYNDROME [None]
  - HYPOKALAEMIA [None]
  - HYPONATRAEMIA [None]
  - POLYNEUROPATHY [None]
  - SCIATICA [None]
